FAERS Safety Report 7061794-2 (Version None)
Quarter: 2010Q4

REPORT INFORMATION
  Report Type: 
  Country: None (occurrence: None)
  Receive Date: 20101026
  Receipt Date: 20101018
  Transmission Date: 20110411
  Serious: Yes (Other)
  Sender: FDA-Public Use
  Company Number: US-GILEAD-2010-0032699

PATIENT
  Sex: Female

DRUGS (1)
  1. LETAIRIS [Suspect]
     Indication: PULMONARY ARTERIAL HYPERTENSION
     Route: 048
     Dates: start: 20081002

REACTIONS (4)
  - EPISTAXIS [None]
  - INCREASED UPPER AIRWAY SECRETION [None]
  - PERICARDIAL EFFUSION [None]
  - RESPIRATORY TRACT CONGESTION [None]
